FAERS Safety Report 4819358-4 (Version None)
Quarter: 2005Q4

REPORT INFORMATION
  Report Type: 
  Country: None (occurrence: None)
  Receive Date: 20051031
  Receipt Date: 20050802
  Transmission Date: 20060501
  Serious: No
  Sender: FDA-Public Use
  Company Number: 2005PV000746

PATIENT
  Age: 62 Year
  Sex: Female
  Weight: 63.5036 kg

DRUGS (10)
  1. SYMLIN [Suspect]
     Indication: DIABETES MELLITUS INSULIN-DEPENDENT
     Dosage: 15 MCG;TID;SC
     Route: 058
     Dates: start: 20050701
  2. LIPITOR [Concomitant]
  3. ZETIA [Concomitant]
  4. SYNTHROID [Concomitant]
  5. MOBIC [Concomitant]
  6. QUININE [Concomitant]
  7. IMIPRAMINE [Concomitant]
  8. CALCIUM GLUCONATE [Concomitant]
  9. DIABETIC VITAMINS [Concomitant]
  10. INSULIN [Concomitant]

REACTIONS (4)
  - BLOOD GLUCOSE DECREASED [None]
  - BLOOD GLUCOSE INCREASED [None]
  - DECREASED ACTIVITY [None]
  - NAUSEA [None]
